FAERS Safety Report 4599549-0 (Version None)
Quarter: 2005Q1

REPORT INFORMATION
  Report Type: 
  Country: None (occurrence: None)
  Receive Date: 20050307
  Receipt Date: 20050223
  Transmission Date: 20050727
  Serious: Yes (Other)
  Sender: FDA-Public Use
  Company Number: FR-JNJFOC-20050205847

PATIENT
  Age: 28 Year
  Sex: Female

DRUGS (5)
  1. RISPERDAL [Suspect]
     Route: 049
  2. RISPERDAL [Suspect]
     Indication: DISSOCIATIVE DISORDER
     Route: 049
  3. TERCIAN [Concomitant]
  4. STABLON [Concomitant]
  5. HEPT-A-MYL [Concomitant]

REACTIONS (2)
  - HYPOTHERMIA [None]
  - LEUKOPENIA [None]
